FAERS Safety Report 6940710-5 (Version None)
Quarter: 2010Q3

REPORT INFORMATION
  Report Type: 
  Country: None (occurrence: None)
  Receive Date: 20100825
  Receipt Date: 20100812
  Transmission Date: 20110219
  Serious: Yes (Hospitalization)
  Sender: FDA-Public Use
  Company Number: US-ROCHE-721124

PATIENT
  Age: 47 Year
  Sex: Female
  Weight: 64 kg

DRUGS (4)
  1. BLINDED BEVACIZUMAB [Suspect]
     Indication: GLIOBLASTOMA MULTIFORME
     Dosage: LAST ADMINISTERED DOSE: 27 JULY 2010
     Route: 042
     Dates: start: 20100719
  2. TEMOZOLOMIDE [Suspect]
     Indication: GLIOBLASTOMA MULTIFORME
     Dosage: LAST DOSE ADMINISTERED DATE: 14 JULY 2010.
     Route: 048
     Dates: start: 20100602
  3. KEPPRA [Suspect]
     Route: 065
  4. HALDOL [Suspect]
     Route: 065

REACTIONS (4)
  - CONVULSION [None]
  - EMBOLISM ARTERIAL [None]
  - HYPONATRAEMIA [None]
  - URINARY TRACT INFECTION [None]
